FAERS Safety Report 7708815-9 (Version None)
Quarter: 2011Q3

REPORT INFORMATION
  Report Type: 
  Country: None (occurrence: None)
  Receive Date: 20110825
  Receipt Date: 20110815
  Transmission Date: 20111222
  Serious: No
  Sender: FDA-Public Use
  Company Number: US-B.I. PHARMACEUTICALS,INC./RIDGEFIELD-2011-BP-20142BP

PATIENT
  Age: 64 Year
  Sex: Female

DRUGS (3)
  1. HUMALOG PEN [Concomitant]
  2. LANTUS [Concomitant]
  3. PRADAXA [Suspect]
     Indication: ATRIAL FIBRILLATION
     Dosage: 300 MG
     Route: 048
     Dates: start: 20110815

REACTIONS (1)
  - FLATULENCE [None]
